FAERS Safety Report 15890611 (Version 1)
Quarter: 2019Q1

REPORT INFORMATION
  Report Type: Spontaneous
  Country: FR (occurrence: FR)
  Receive Date: 20190130
  Receipt Date: 20190130
  Transmission Date: 20190417
  Serious: Yes (Hospitalization)
  Sender: FDA-Public Use
  Company Number: FR-TEVA-2019-FR-1003589

PATIENT
  Age: 68 Year
  Sex: Female
  Weight: 56 kg

DRUGS (9)
  1. FOLINATE DE CALCIUM [Suspect]
     Active Substance: LEUCOVORIN CALCIUM
     Indication: ADENOCARCINOMA OF COLON
     Dosage: C1-C2:680 MG/CYCLE ET C3: 640 MG/CYCLE
     Route: 042
     Dates: start: 20180924, end: 20181023
  2. METHYLPREDNISOLONE. [Concomitant]
     Active Substance: METHYLPREDNISOLONE
  3. ONDANSETRON [Concomitant]
     Active Substance: ONDANSETRON
  4. FILGRASTIM ((BACTERIE/ESCHERICHIA COLI)) [Concomitant]
  5. FLUOROURACILE ACCORD 50 MG/ML, SOLUTION POUR PERFUSION [Suspect]
     Active Substance: FLUOROURACIL
     Indication: ADENOCARCINOMA OF COLON
     Dosage: C1-C2: 5300MG/CYCLE ET C3:3900MG/CYCLE
     Dates: start: 20180924, end: 20181022
  6. AMIKACINE [Suspect]
     Active Substance: AMIKACIN
     Indication: SEPSIS
     Route: 042
     Dates: start: 20181102
  7. APREPITANT. [Concomitant]
     Active Substance: APREPITANT
  8. OXALIPLATINE [Suspect]
     Active Substance: OXALIPLATIN
     Indication: ADENOCARCINOMA OF COLON
     Dosage: C1-C2: 140MG/CYCLE ET C3:120MG/CYCLE
     Route: 065
     Dates: start: 20180924, end: 20181023
  9. PIPERACILLINE TAZOBACTAM KABI [Suspect]
     Active Substance: PIPERACILLIN SODIUM\TAZOBACTAM SODIUM
     Indication: SEPSIS
     Dosage: FROM 31/10 TO 02/11: 4GX3 / D THEN FROM 02 TO 06/11: 4GX4 / D
     Route: 042
     Dates: start: 20181031, end: 20181106

REACTIONS (1)
  - Encephalopathy [Recovering/Resolving]

NARRATIVE: CASE EVENT DATE: 20181104
